FAERS Safety Report 19266981 (Version 1)
Quarter: 2021Q2

REPORT INFORMATION
  Report Type: Spontaneous
  Country: CN (occurrence: CN)
  Receive Date: 20210518
  Receipt Date: 20210518
  Transmission Date: 20210717
  Serious: Yes (Other)
  Sender: FDA-Public Use
  Company Number: CN-SUN PHARMACEUTICAL INDUSTRIES LTD-2021R1-296760

PATIENT
  Age: 57 Year
  Sex: Male

DRUGS (2)
  1. NAB?PACLITAXEL [Suspect]
     Active Substance: PACLITAXEL
     Indication: PANCREATIC CARCINOMA METASTATIC
     Dosage: 200 MILLIGRAM (EVERY 2 WEEKS )
     Route: 065
     Dates: start: 201901
  2. GEMCITABINE. [Suspect]
     Active Substance: GEMCITABINE
     Indication: PANCREATIC CARCINOMA METASTATIC
     Dosage: 1.4 GRAM, WEEKLY
     Route: 065
     Dates: start: 201901

REACTIONS (2)
  - Disease progression [Unknown]
  - Drug resistance [Unknown]
